FAERS Safety Report 5149712-5 (Version None)
Quarter: 2006Q4

REPORT INFORMATION
  Report Type: 
  Country: None (occurrence: None)
  Receive Date: 20061113
  Receipt Date: 20061101
  Transmission Date: 20070319
  Serious: Yes (Hospitalization)
  Sender: FDA-Public Use
  Company Number: US-ROCHE-469781

PATIENT
  Age: 63 Year
  Sex: Male

DRUGS (1)
  1. FUZEON [Suspect]
     Route: 058
     Dates: start: 20021001

REACTIONS (1)
  - MYOCARDIAL INFARCTION [None]
